FAERS Safety Report 26094030 (Version 1)
Quarter: 2025Q4

REPORT INFORMATION
  Report Type: Spontaneous
  Country: US (occurrence: None)
  Receive Date: 20251126
  Receipt Date: 20251126
  Transmission Date: 20260117
  Serious: Yes (Other)
  Sender: FDA-CTU
  Company Number: None

PATIENT
  Age: 70 Year
  Sex: Female
  Weight: 79.38 kg

DRUGS (11)
  1. AFLIBERCEPT-AYYH [Suspect]
     Active Substance: AFLIBERCEPT-AYYH
     Dosage: OTHER ROUTE : INJECTION BY DOCTOR;?
     Route: 050
  2. MINERALS\VITAMINS [Concomitant]
     Active Substance: MINERALS\VITAMINS
  3. POTASSIUM [Concomitant]
     Active Substance: POTASSIUM
  4. MAGNESIUM [Concomitant]
     Active Substance: MAGNESIUM
  5. IRBESARTAN [Concomitant]
     Active Substance: IRBESARTAN
  6. ATORVASTATIN [Concomitant]
     Active Substance: ATORVASTATIN
  7. AMLODIPINE [Concomitant]
     Active Substance: AMLODIPINE BESYLATE
  8. WARFARIN [Concomitant]
     Active Substance: WARFARIN
  9. METFORMIN [Concomitant]
     Active Substance: METFORMIN HYDROCHLORIDE
  10. METOPROLOL SUCCINATE [Concomitant]
     Active Substance: METOPROLOL SUCCINATE
  11. LANTUS [Concomitant]
     Active Substance: INSULIN GLARGINE

REACTIONS (6)
  - Product substitution issue [None]
  - Visual impairment [None]
  - Eye pain [None]
  - Headache [None]
  - Visual impairment [None]
  - Eyelid function disorder [None]

NARRATIVE: CASE EVENT DATE: 20250514
